FAERS Safety Report 16672928 (Version 2)
Quarter: 2019Q3

REPORT INFORMATION
  Report Type: Spontaneous
  Country: JP (occurrence: JP)
  Receive Date: 20190806
  Receipt Date: 20190807
  Transmission Date: 20191004
  Serious: Yes (Hospitalization, Other)
  Sender: FDA-Public Use
  Company Number: JP-PFIZER INC-2019337279

PATIENT
  Age: 87 Year
  Sex: Male

DRUGS (5)
  1. ALPRAZOLAM. [Suspect]
     Active Substance: ALPRAZOLAM
     Dosage: UNK UNK, ONCE DAILY, DURING THE DAY AT 3 O ^CLOCK
     Route: 048
  2. MYSLEE [Suspect]
     Active Substance: ZOLPIDEM TARTRATE
     Dosage: 40 MG, DAILY
     Route: 048
     Dates: start: 20190703, end: 20190703
  3. CELECOX [Suspect]
     Active Substance: CELECOXIB
     Indication: BACK PAIN
     Dosage: 200 MG, DAILY
     Route: 048
  4. MYSLEE [Suspect]
     Active Substance: ZOLPIDEM TARTRATE
     Indication: SLEEP DISORDER
     Dosage: UNK, UNK, UNKNOWN FREQ.
     Route: 048
  5. VOLTAREN [DICLOFENAC] [Concomitant]
     Active Substance: DICLOFENAC SODIUM
     Dosage: UNK UNK, UNKNOWN FREQ.
     Route: 050

REACTIONS (4)
  - Somnolence [Recovered/Resolved]
  - Spinal compression fracture [Unknown]
  - Fall [Unknown]
  - Intentional overdose [Unknown]

NARRATIVE: CASE EVENT DATE: 20190703
